FAERS Safety Report 17091524 (Version 1)
Quarter: 2019Q4

REPORT INFORMATION
  Report Type: Spontaneous
  Country: US (occurrence: US)
  Receive Date: 20191101
  Receipt Date: 20191101
  Transmission Date: 20200122
  Serious: No
  Sender: FDA-Public Use
  Company Number: None

PATIENT
  Sex: Female

DRUGS (2)
  1. ANASTROZOLE ++ [Suspect]
     Active Substance: ANASTROZOLE
     Route: 048
     Dates: start: 20190906
  2. KISQALI [Suspect]
     Active Substance: RIBOCICLIB
     Route: 048
     Dates: start: 20190906

REACTIONS (1)
  - Herpes zoster [None]
